FAERS Safety Report 18909337 (Version 1)
Quarter: 2021Q1

REPORT INFORMATION
  Report Type: Spontaneous
  Country: US (occurrence: US)
  Receive Date: 20210218
  Receipt Date: 20210218
  Transmission Date: 20210420
  Serious: Yes (Hospitalization)
  Sender: FDA-Public Use
  Company Number: None

PATIENT
  Age: 43 Year
  Sex: Male

DRUGS (1)
  1. DESCOVY [Suspect]
     Active Substance: EMTRICITABINE\TENOFOVIR ALAFENAMIDE FUMARATE
     Indication: ASYMPTOMATIC HIV INFECTION
     Route: 048

REACTIONS (3)
  - Therapy cessation [None]
  - Acute kidney injury [None]
  - Acute myocardial infarction [None]

NARRATIVE: CASE EVENT DATE: 20210206
